FAERS Safety Report 6316124-8 (Version None)
Quarter: 2009Q3

REPORT INFORMATION
  Report Type: 
  Country: None (occurrence: None)
  Receive Date: 20090820
  Receipt Date: 20090812
  Transmission Date: 20100115
  Serious: Yes (Disabling)
  Sender: FDA-Public Use
  Company Number: BR-ASTRAZENECA-2009SE07898

PATIENT
  Age: 48 Year
  Sex: Male

DRUGS (1)
  1. MARCAINA [Suspect]
     Indication: SPINAL ANAESTHESIA
     Route: 037

REACTIONS (3)
  - HYPOAESTHESIA [None]
  - MOTOR DYSFUNCTION [None]
  - SENSORY LOSS [None]
